FAERS Safety Report 7920251-9 (Version None)
Quarter: 2011Q4

REPORT INFORMATION
  Report Type: 
  Country: None (occurrence: None)
  Receive Date: 20111117
  Receipt Date: 20111109
  Transmission Date: 20120403
  Serious: Yes (Hospitalization)
  Sender: FDA-Public Use
  Company Number: US-BAYER-2011-108805

PATIENT
  Age: 21 Year
  Sex: Female

DRUGS (1)
  1. MIRENA [Suspect]
     Indication: CONTRACEPTION
     Dosage: 20 ?G, CONT
     Route: 015

REACTIONS (9)
  - VOMITING [None]
  - FATIGUE [None]
  - PAIN [None]
  - CHOLECYSTECTOMY [None]
  - HYPOAESTHESIA [None]
  - AMENORRHOEA [None]
  - VOMITING IN PREGNANCY [None]
  - DEVICE EXPULSION [None]
  - DEHYDRATION [None]
